FAERS Safety Report 21790926 (Version 1)
Quarter: 2022Q4

REPORT INFORMATION
  Report Type: Spontaneous
  Country: US (occurrence: US)
  Receive Date: 20221228
  Receipt Date: 20221228
  Transmission Date: 20230112
  Serious: Yes (Other)
  Sender: FDA-Public Use
  Company Number: US-INTRA-CELLULAR THERAPIES, INC.-2022ICT01798

PATIENT
  Age: 20 Year
  Sex: Female

DRUGS (2)
  1. CAPLYTA [Suspect]
     Active Substance: LUMATEPERONE
     Indication: Bipolar I disorder
     Dosage: UNK
     Dates: start: 202207, end: 202212
  2. CAPLYTA [Suspect]
     Active Substance: LUMATEPERONE
     Dosage: EVERY OTHER DAY FOR A WEEK
     Dates: start: 202212, end: 202212

REACTIONS (4)
  - Hallucination, visual [Unknown]
  - Hallucination, auditory [Unknown]
  - Depression [Unknown]
  - Rash [Unknown]

NARRATIVE: CASE EVENT DATE: 20220101
